FAERS Safety Report 8198418-7 (Version None)
Quarter: 2012Q1

REPORT INFORMATION
  Report Type: 
  Country: None (occurrence: None)
  Receive Date: 20120309
  Receipt Date: 20111215
  Transmission Date: 20120608
  Serious: No
  Sender: FDA-Public Use
  Company Number: US-AMGEN-USASP2011048071

PATIENT
  Age: 76 Year
  Sex: Female
  Weight: 70.295 kg

DRUGS (12)
  1. ELMIRON [Concomitant]
  2. IBUPROFEN [Concomitant]
  3. HYDROCHLOROTHIAZIDE [Concomitant]
     Dosage: 25 MG, UNK
  4. XANAX [Concomitant]
     Dosage: 1 MG, UNK
  5. OMEPRAZOLE [Concomitant]
     Dosage: 40 MG, UNK
  6. VITAMIN TAB [Concomitant]
  7. SIMVASTATIN [Concomitant]
     Dosage: 80 MG, UNK
  8. PREMARIN [Concomitant]
  9. PROLIA [Suspect]
     Indication: OSTEOPOROSIS POSTMENOPAUSAL
     Dosage: 60 MG, Q6MO
     Route: 030
     Dates: start: 20110914
  10. ARICEPT [Concomitant]
     Dosage: 10 MG, UNK
  11. SYNTHROID [Concomitant]
     Indication: HYPOTHYROIDISM
     Dosage: 75 MUG, UNK
  12. VICODIN ES [Concomitant]
     Dosage: UNK

REACTIONS (8)
  - MUSCLE SPASMS [None]
  - DIZZINESS [None]
  - PAIN IN EXTREMITY [None]
  - IMPAIRED HEALING [None]
  - OROPHARYNGEAL PAIN [None]
  - MICTURITION URGENCY [None]
  - TINNITUS [None]
  - CHILLS [None]
